FAERS Safety Report 8434438-2 (Version None)
Quarter: 2012Q2

REPORT INFORMATION
  Report Type: 
  Country: None (occurrence: None)
  Receive Date: 20120614
  Receipt Date: 20120608
  Transmission Date: 20120825
  Serious: Yes (Death, Hospitalization)
  Sender: FDA-Public Use
  Company Number: US-BRISTOL-MYERS SQUIBB COMPANY-16081432

PATIENT
  Sex: Male

DRUGS (1)
  1. YERVOY [Suspect]
     Dosage: RECEIVED TWO DOSES

REACTIONS (4)
  - RENAL FAILURE [None]
  - DEATH [None]
  - HEPATIC FAILURE [None]
  - EJECTION FRACTION DECREASED [None]
